FAERS Safety Report 24991902 (Version 1)
Quarter: 2025Q1

REPORT INFORMATION
  Report Type: Spontaneous
  Country: US (occurrence: None)
  Receive Date: 20250220
  Receipt Date: 20250220
  Transmission Date: 20250409
  Serious: Yes (Hospitalization)
  Sender: FDA-CTU
  Company Number: None

PATIENT
  Age: 82 Year
  Sex: Male
  Weight: 91 kg

DRUGS (1)
  1. FERUMOXYTOL [Suspect]
     Active Substance: FERUMOXYTOL
     Indication: Anaemia
     Dates: start: 20230314, end: 20230314

REACTIONS (7)
  - Anaphylactic reaction [None]
  - Hypersensitivity [None]
  - Ear discomfort [None]
  - Pruritus [None]
  - Dyspnoea [None]
  - Ocular hyperaemia [None]
  - Eye swelling [None]

NARRATIVE: CASE EVENT DATE: 20230314
